FAERS Safety Report 19427641 (Version 1)
Quarter: 2021Q2

REPORT INFORMATION
  Report Type: Other
  Country: US (occurrence: US)
  Receive Date: 20210616
  Receipt Date: 20210616
  Transmission Date: 20210717
  Serious: No
  Sender: FDA-Public Use
  Company Number: US-ROCHE-2760635

PATIENT

DRUGS (3)
  1. TOCILIZUMAB. [Suspect]
     Active Substance: TOCILIZUMAB
     Indication: COVID-19
     Route: 065
  2. COLCHICINE. [Concomitant]
     Active Substance: COLCHICINE
     Indication: COVID-19
  3. COLCHICINE. [Concomitant]
     Active Substance: COLCHICINE
     Dosage: COLCHICINE WOULD NOT BE CONTINUED IF THE PATIENTS WERE DISCHARGED FROM THE HOSPITAL BEFORE COMPLETIN

REACTIONS (3)
  - Off label use [Unknown]
  - Intentional product use issue [Unknown]
  - No adverse event [Unknown]
